FAERS Safety Report 4933426-8 (Version None)
Quarter: 2006Q1

REPORT INFORMATION
  Report Type: 
  Country: None (occurrence: None)
  Receive Date: 20060306
  Receipt Date: 20060110
  Transmission Date: 20060701
  Serious: Yes (Hospitalization)
  Sender: FDA-Public Use
  Company Number: JP-GLAXOSMITHKLINE-B0406222A

PATIENT
  Age: 57 Year
  Sex: Female

DRUGS (27)
  1. ADEFOVIR DIPIVOXIL [Suspect]
     Indication: HEPATIC CIRRHOSIS
     Dosage: 10MG PER DAY
     Route: 048
     Dates: start: 20050127, end: 20050701
  2. ZEFIX [Suspect]
     Dosage: 100MG PER DAY
     Route: 048
     Dates: start: 20050117, end: 20050701
  3. OMEPRAL [Concomitant]
     Route: 048
  4. MAGMITT [Concomitant]
     Route: 048
  5. LASIX [Concomitant]
     Route: 048
  6. ALDACTONE [Concomitant]
     Route: 048
  7. BERIZYM [Concomitant]
     Route: 048
  8. FLUOROURACIL [Concomitant]
     Route: 042
  9. INTERFERON [Concomitant]
  10. UNSPECIFIED MEDICATION [Concomitant]
     Route: 042
  11. MORPHINE [Concomitant]
  12. LASIX [Concomitant]
     Route: 042
  13. ALBUMIN (HUMAN) [Concomitant]
     Route: 042
  14. SOLITA-T NO.3 [Concomitant]
     Route: 042
  15. ADONA (AC-17) [Concomitant]
  16. TRANSAMIN [Concomitant]
  17. KAYTWO N [Concomitant]
     Route: 042
  18. HUMULIN R [Concomitant]
  19. PHYSIO 35 [Concomitant]
  20. GLUCOSE [Concomitant]
  21. ATARAX [Concomitant]
     Route: 048
  22. VEEN-D [Concomitant]
     Route: 042
  23. VITAMEDIN [Concomitant]
     Route: 042
  24. PRIMPERAN TAB [Concomitant]
  25. AMINOFLUID [Concomitant]
     Route: 042
  26. NEO-MINOPHAGEN C [Concomitant]
     Route: 042
  27. UNSPECIFIED MEDICATION [Concomitant]
     Route: 042

REACTIONS (1)
  - ASCITES [None]
